FAERS Safety Report 22311658 (Version 1)
Quarter: 2023Q2

REPORT INFORMATION
  Report Type: Spontaneous
  Country: NO (occurrence: NO)
  Receive Date: 20230511
  Receipt Date: 20230511
  Transmission Date: 20230722
  Serious: Yes (Life-Threatening, Hospitalization, Disabling, Other)
  Sender: FDA-Public Use
  Company Number: None

PATIENT
  Age: 35 Year
  Sex: Female
  Weight: 49 kg

DRUGS (2)
  1. VERMOX [Suspect]
     Active Substance: MEBENDAZOLE
     Indication: Enterobiasis
     Dosage: A TOTAL OF 4 TREATMENTS
     Route: 048
     Dates: start: 202211, end: 202301
  2. FERROMAX [FERROUS SULFATE] [Concomitant]
     Indication: Iron deficiency
     Route: 065
     Dates: start: 20220826, end: 20230220

REACTIONS (10)
  - General physical health deterioration [Recovered/Resolved]
  - Ileus [Recovered/Resolved]
  - Intussusception [Recovered/Resolved]
  - Colectomy [Unknown]
  - Small intestinal resection [Unknown]
  - Decreased appetite [Unknown]
  - Fatigue [Unknown]
  - Illness [Unknown]
  - Alopecia [Unknown]
  - Abdominal pain [Unknown]

NARRATIVE: CASE EVENT DATE: 20230201
